FAERS Safety Report 13257131 (Version 1)
Quarter: 2017Q1

REPORT INFORMATION
  Report Type: Spontaneous
  Country: BR (occurrence: BR)
  Receive Date: 20170221
  Receipt Date: 20170221
  Transmission Date: 20170428
  Serious: Yes (Hospitalization, Other)
  Sender: FDA-Public Use
  Company Number: BR-JNJFOC-20170210307

PATIENT
  Sex: Female

DRUGS (2)
  1. TYLENOL [Suspect]
     Active Substance: ACETAMINOPHEN
     Indication: PAIN
     Route: 065
  2. TYLENOL [Suspect]
     Active Substance: ACETAMINOPHEN
     Route: 065

REACTIONS (5)
  - Tendonitis [Unknown]
  - Condition aggravated [Unknown]
  - Pyrexia [Unknown]
  - Drug hypersensitivity [Unknown]
  - Burning sensation mucosal [Unknown]
